FAERS Safety Report 19699609 (Version 2)
Quarter: 2021Q3

REPORT INFORMATION
  Report Type: Spontaneous
  Country: NG (occurrence: NG)
  Receive Date: 20210813
  Receipt Date: 20210827
  Transmission Date: 20211014
  Serious: Yes (Death, Hospitalization)
  Sender: FDA-Public Use
  Company Number: NG-PFIZER INC-202100999401

PATIENT
  Age: 25 Year
  Sex: Male
  Weight: 130 kg

DRUGS (3)
  1. MERONEM [Suspect]
     Active Substance: MEROPENEM
     Dosage: 500 MG, 3X/DAY
     Route: 042
     Dates: start: 20210801
  2. OMEPRAZOLE. [Suspect]
     Active Substance: OMEPRAZOLE
     Dosage: 40 MG
     Route: 042
  3. DEXTROSE. [Concomitant]
     Active Substance: DEXTROSE
     Dosage: UNK

REACTIONS (2)
  - Hypertension [Fatal]
  - Blood glucose increased [Unknown]
